FAERS Safety Report 20850294 (Version 14)
Quarter: 2022Q4

REPORT INFORMATION
  Report Type: Spontaneous
  Country: US (occurrence: US)
  Receive Date: 20220519
  Receipt Date: 20221220
  Transmission Date: 20230113
  Serious: Yes (Other)
  Sender: FDA-Public Use
  Company Number: US-PFIZER INC-202200434400

PATIENT
  Age: 71 Year
  Sex: Female
  Weight: 62.6 kg

DRUGS (7)
  1. IBRANCE [Suspect]
     Active Substance: PALBOCICLIB
     Indication: Endometrial cancer
     Dosage: 100 MG, CYCLIC (3 WEEKS ON AND 1 WEEK OFF)
  2. IBRANCE [Suspect]
     Active Substance: PALBOCICLIB
     Indication: Uterine cancer
     Dosage: 75 MG
  3. IBRANCE [Suspect]
     Active Substance: PALBOCICLIB
     Indication: Endometrial neoplasm
     Dosage: 100 MG
  4. FASLODEX [Concomitant]
     Active Substance: FULVESTRANT
     Indication: HER2 positive breast cancer
     Dosage: UNK
  5. TAXOL [Concomitant]
     Active Substance: PACLITAXEL
     Dosage: UNK
  6. PEPCID [Concomitant]
     Active Substance: FAMOTIDINE
     Dosage: UNK
  7. FULVESTRANT [Concomitant]
     Active Substance: FULVESTRANT
     Dosage: UNK

REACTIONS (17)
  - Glaucoma [Unknown]
  - Spinal pain [Unknown]
  - Off label use [Unknown]
  - Neoplasm progression [Unknown]
  - Illness [Recovering/Resolving]
  - Anxiety [Unknown]
  - Drug hypersensitivity [Unknown]
  - Feeling cold [Not Recovered/Not Resolved]
  - Malaise [Recovering/Resolving]
  - Cognitive disorder [Unknown]
  - Pulmonary mass [Unknown]
  - Appetite disorder [Unknown]
  - Fatigue [Unknown]
  - Diarrhoea [Not Recovered/Not Resolved]
  - Emotional disorder [Unknown]
  - Crying [Unknown]
  - Joint noise [Unknown]

NARRATIVE: CASE EVENT DATE: 20221101
